FAERS Safety Report 6936328-0 (Version None)
Quarter: 2010Q3

REPORT INFORMATION
  Report Type: 
  Country: None (occurrence: None)
  Receive Date: 20100823
  Receipt Date: 20100811
  Transmission Date: 20110219
  Serious: Yes (Life-Threatening, Other)
  Sender: FDA-Public Use
  Company Number: FR-PFIZER INC-2010102614

PATIENT
  Age: 9 Year
  Sex: Male

DRUGS (13)
  1. ATARAX [Suspect]
     Dosage: UNK
     Dates: start: 20100501, end: 20100604
  2. ATARAX [Suspect]
     Dosage: UNK
     Dates: start: 20100621, end: 20100629
  3. ATARAX [Suspect]
     Dosage: UNK
  4. ARTANE [Suspect]
     Dosage: UNK
     Dates: start: 20100601, end: 20100629
  5. RISPERDAL [Suspect]
     Dosage: UNK
     Dates: start: 20080101, end: 20100501
  6. METHYLPHENIDATE [Suspect]
     Dosage: UNK
     Route: 048
     Dates: start: 20080101, end: 20100501
  7. METHYLPHENIDATE [Suspect]
     Dosage: UNK
     Route: 048
     Dates: start: 20100621, end: 20100629
  8. NEULEPTIL [Suspect]
     Dosage: UNK
     Dates: start: 20100501, end: 20100531
  9. TERCIAN [Suspect]
     Dosage: UNK
     Dates: start: 20100501, end: 20100531
  10. CONCERTA [Suspect]
     Dosage: UNK
     Dates: start: 20100501, end: 20100531
  11. LEPTICUR [Suspect]
     Dosage: UNK
     Dates: start: 20100604, end: 20100621
  12. RIVOTRIL [Suspect]
     Dosage: UNK
     Dates: start: 20100604, end: 20100621
  13. NOPRON [Suspect]
     Dosage: UNK
     Dates: start: 20100628, end: 20100629

REACTIONS (10)
  - AGGRESSION [None]
  - AGITATION [None]
  - ALTERED STATE OF CONSCIOUSNESS [None]
  - CYTOLYTIC HEPATITIS [None]
  - DEHYDRATION [None]
  - DYSKINESIA [None]
  - HYPERTHERMIA [None]
  - RENAL FAILURE ACUTE [None]
  - RHABDOMYOLYSIS [None]
  - TACHYCARDIA [None]
